FAERS Safety Report 21004590 (Version 1)
Quarter: 2022Q2

REPORT INFORMATION
  Report Type: Spontaneous
  Country: BR (occurrence: BR)
  Receive Date: 20220624
  Receipt Date: 20220624
  Transmission Date: 20220721
  Serious: Yes (Other)
  Sender: FDA-Public Use
  Company Number: BR-MYLANLABS-2022M1048062

PATIENT
  Age: 41 Year
  Sex: Female

DRUGS (10)
  1. OXALIPLATIN [Suspect]
     Active Substance: OXALIPLATIN
     Indication: Adult T-cell lymphoma/leukaemia
     Dosage: UNK, CYCLE, SALVAGE CHEMOTHERAPY WITH GEMOX
     Route: 065
  2. ETOPOSIDE [Suspect]
     Active Substance: ETOPOSIDE
     Indication: Adult T-cell lymphoma/leukaemia
     Dosage: UNK, CYCLE, DAEPOCH CHEMOTHERAPY WITH ADJUSTED DOSE
     Route: 065
  3. PREDNISOLONE [Suspect]
     Active Substance: PREDNISOLONE
     Indication: Adult T-cell lymphoma/leukaemia
     Dosage: UNK, CYCLE,DAEPOCH CHEMOTHERAPY WITH ADJUSTED DOSE
     Route: 065
  4. VINCRISTINE [Suspect]
     Active Substance: VINCRISTINE
     Indication: Adult T-cell lymphoma/leukaemia
     Dosage: UNK, CYCLE DAEPOCH CHEMOTHERAPY WITH ADJUSTED DOSE
     Route: 065
  5. CYCLOPHOSPHAMIDE [Suspect]
     Active Substance: CYCLOPHOSPHAMIDE
     Indication: Adult T-cell lymphoma/leukaemia
     Dosage: UNK, CYCLE, DAEPOCH CHEMOTHERAPY WITH ADJUSTED DOSE
     Route: 065
  6. DOXORUBICIN [Suspect]
     Active Substance: DOXORUBICIN
     Indication: Adult T-cell lymphoma/leukaemia
     Dosage: UNK, CYCLE, DAEPOCH CHEMOTHERAPY WITH ADJUSTED DOSE
     Route: 065
  7. DEXAMETHASONE [Suspect]
     Active Substance: DEXAMETHASONE
     Indication: Adult T-cell lymphoma/leukaemia
     Dosage: UNK, CYCLE, PAH CHEMOTHERAPY
     Route: 065
  8. CYTARABINE [Suspect]
     Active Substance: CYTARABINE
     Indication: Adult T-cell lymphoma/leukaemia
     Dosage: UNK, CYCLE, PAH CHEMOTHERAPY
     Route: 065
  9. CISPLATIN [Suspect]
     Active Substance: CISPLATIN
     Indication: Adult T-cell lymphoma/leukaemia
     Dosage: UNK, CYCLE, PAH CHEMOTHERAPY
     Route: 065
  10. GEMCITABINE [Suspect]
     Active Substance: GEMCITABINE
     Indication: Adult T-cell lymphoma/leukaemia
     Dosage: UNK, CYCLE, SALVAGE CHEMOTHERAPY WITH GEMOX
     Route: 065

REACTIONS (1)
  - Drug ineffective [Unknown]
